FAERS Safety Report 9968857 (Version 1)
Quarter: 2014Q1

REPORT INFORMATION
  Report Type: Spontaneous
  Country: US (occurrence: US)
  Receive Date: 20140306
  Receipt Date: 20140306
  Transmission Date: 20141002
  Serious: Yes (Hospitalization)
  Sender: FDA-Public Use
  Company Number: US-AMGEN-USASP2014015324

PATIENT
  Age: 68 Year
  Sex: Female

DRUGS (3)
  1. ENBREL [Suspect]
     Indication: PSORIATIC ARTHROPATHY
     Dosage: 50 MG, QWK
     Route: 065
     Dates: start: 20030101
  2. ENBREL [Suspect]
     Indication: RHEUMATOID ARTHRITIS
  3. RITUXAN [Concomitant]
     Dosage: UNK

REACTIONS (7)
  - Cholecystectomy [Recovered/Resolved]
  - Hernia repair [Recovered/Resolved]
  - Procedural complication [Recovered/Resolved]
  - Intracranial aneurysm [Recovered/Resolved]
  - Cardiac failure congestive [Recovered/Resolved]
  - Arthralgia [Not Recovered/Not Resolved]
  - Psoriasis [Not Recovered/Not Resolved]
